FAERS Safety Report 5875029-7 (Version None)
Quarter: 2008Q3

REPORT INFORMATION
  Report Type: 
  Country: None (occurrence: None)
  Receive Date: 20080908
  Receipt Date: 20080908
  Transmission Date: 20090109
  Serious: Yes (Death, Hospitalization)
  Sender: FDA-Public Use
  Company Number: None

PATIENT
  Age: 58 Year
  Sex: Female
  Weight: 68.0396 kg

DRUGS (1)
  1. RITUXAN [Suspect]

REACTIONS (3)
  - SKIN EXFOLIATION [None]
  - TREMOR [None]
  - URINARY INCONTINENCE [None]
